FAERS Safety Report 5467115-0 (Version None)
Quarter: 2007Q3

REPORT INFORMATION
  Report Type: 
  Country: None (occurrence: None)
  Receive Date: 20070921
  Receipt Date: 20070921
  Transmission Date: 20080115
  Serious: Yes (Other)
  Sender: FDA-Public Use
  Company Number: None

PATIENT
  Age: 61 Year
  Sex: Female
  Weight: 48.5349 kg

DRUGS (1)
  1. AVELOX [Suspect]
     Indication: SINUSITIS
     Dosage: 1 DAILY PO
     Route: 048
     Dates: start: 20070914, end: 20070918

REACTIONS (12)
  - CONFUSIONAL STATE [None]
  - DRY MOUTH [None]
  - EMOTIONAL DISORDER [None]
  - FEAR [None]
  - GAIT DISTURBANCE [None]
  - HEART RATE INCREASED [None]
  - INCOHERENT [None]
  - MENTAL STATUS CHANGES [None]
  - MOTOR DYSFUNCTION [None]
  - PANIC REACTION [None]
  - SPEECH DISORDER [None]
  - TREMOR [None]
